FAERS Safety Report 19881258 (Version 1)
Quarter: 2021Q3

REPORT INFORMATION
  Report Type: Spontaneous
  Country: NL (occurrence: NL)
  Receive Date: 20210924
  Receipt Date: 20210924
  Transmission Date: 20211014
  Serious: Yes (Other)
  Sender: FDA-Public Use
  Company Number: NL-MYLANLABS-2021M1065043

PATIENT
  Age: 58 Year
  Sex: Male
  Weight: 78 kg

DRUGS (7)
  1. RIVAROXABAN [Concomitant]
     Active Substance: RIVAROXABAN
     Dosage: 20 MILLIGRAM
  2. BISOPROLOL [Concomitant]
     Active Substance: BISOPROLOL
     Dosage: 2.5 MILLIGRAM
  3. EZETIMIB MEPHA TEVA [Concomitant]
     Dosage: 10 MILLIGRAM
  4. ROSUVASTATINE                      /01588601/ [Concomitant]
     Active Substance: ROSUVASTATIN
     Dosage: 20 MILLIGRAM
  5. CANDESARTAN. [Concomitant]
     Active Substance: CANDESARTAN
     Dosage: 32 MILLIGRAM
  6. PANTOPRAZOLE [Suspect]
     Active Substance: PANTOPRAZOLE
     Indication: PROPHYLAXIS
     Dosage: 1 X DAG 1 STUK
     Dates: start: 201803, end: 20210623
  7. EPLERENONA [Concomitant]
     Active Substance: EPLERENONE
     Dosage: 25 MILLIGRAM

REACTIONS (12)
  - Ageusia [Recovering/Resolving]
  - Weight decreased [Recovered/Resolved]
  - Pruritus [Recovering/Resolving]
  - Myalgia [Recovering/Resolving]
  - Rash papular [Recovering/Resolving]
  - Neuropathy peripheral [Recovering/Resolving]
  - Anosmia [Recovering/Resolving]
  - Muscle spasms [Recovering/Resolving]
  - Dizziness [Recovering/Resolving]
  - Asthenia [Recovering/Resolving]
  - Abnormal faeces [Recovered/Resolved]
  - Decreased appetite [Recovering/Resolving]

NARRATIVE: CASE EVENT DATE: 20180401
